FAERS Safety Report 22368538 (Version 5)
Quarter: 2024Q2

REPORT INFORMATION
  Report Type: Spontaneous
  Country: US (occurrence: US)
  Receive Date: 20230525
  Receipt Date: 20240401
  Transmission Date: 20240716
  Serious: No
  Sender: FDA-Public Use
  Company Number: US-PFIZER INC-PV202300090747

PATIENT
  Age: 79 Year
  Sex: Female
  Weight: 40.816 kg

DRUGS (1)
  1. XELJANZ [Suspect]
     Active Substance: TOFACITINIB CITRATE
     Dosage: 5 MG, DAILY

REACTIONS (3)
  - Muscle spasms [Unknown]
  - Malaise [Unknown]
  - Off label use [Unknown]
